FAERS Safety Report 5120283-2 (Version None)
Quarter: 2006Q4

REPORT INFORMATION
  Report Type: 
  Country: None (occurrence: None)
  Receive Date: 20061004
  Receipt Date: 20060926
  Transmission Date: 20070319
  Serious: Yes (Other)
  Sender: FDA-Public Use
  Company Number: PHMT2006CA01873

PATIENT
  Age: 63 Year
  Sex: Female

DRUGS (13)
  1. ZELNORM [Suspect]
     Dosage: USED VERY OCCASIONALLY
  2. DILANTIN /CAN/ [Concomitant]
     Dosage: UNK, QD
  3. EFFEXOR [Concomitant]
     Dosage: UNK, QD
  4. ESTROGENS CONJUGATED [Concomitant]
     Dosage: UNK, QD
  5. MYSEDON [Concomitant]
     Dosage: UNK, QD
  6. LASIX [Concomitant]
     Dosage: UNK, QD
  7. FOLIC ACID [Concomitant]
     Dosage: UNK, QD
  8. SPIRONOLACTONE [Concomitant]
     Dosage: UNK, QD
  9. ASPIRIN [Concomitant]
     Dosage: UNK, QD
  10. SUMATRIPTAN SUCCINATE [Concomitant]
     Dosage: UNK, QD
  11. LEVOTHYROXINE SODIUM [Concomitant]
     Dosage: UNK, QD
  12. ATACAND [Concomitant]
     Dosage: UNK, QD
  13. PANTOPRAZOLE SODIUM [Concomitant]
     Dosage: UNK, QD

REACTIONS (7)
  - ABNORMAL FAECES [None]
  - ANAL SKIN TAGS [None]
  - CHANGE OF BOWEL HABIT [None]
  - GASTROINTESTINAL MOTILITY DISORDER [None]
  - HAEMORRHOIDS [None]
  - PAINFUL DEFAECATION [None]
  - RECTAL HAEMORRHAGE [None]
